FAERS Safety Report 7643661-6 (Version None)
Quarter: 2011Q3

REPORT INFORMATION
  Report Type: 
  Country: None (occurrence: None)
  Receive Date: 20110729
  Receipt Date: 20110725
  Transmission Date: 20111222
  Serious: Yes (Hospitalization)
  Sender: FDA-Public Use
  Company Number: PHHO2009AU10758

PATIENT
  Sex: Female

DRUGS (2)
  1. MYCOPHENOLIC ACID [Suspect]
     Indication: LUNG TRANSPLANT
     Dosage: UNK
  2. CERTICAN [Suspect]
     Indication: LUNG TRANSPLANT
     Dosage: 3 MG, UNK
     Route: 048
     Dates: start: 20080722

REACTIONS (5)
  - NAUSEA [None]
  - PULMONARY FUNCTION TEST DECREASED [None]
  - NASAL CONGESTION [None]
  - LOWER RESPIRATORY TRACT INFECTION [None]
  - VOMITING [None]
